FAERS Safety Report 6789996-0 (Version None)
Quarter: 2010Q2

REPORT INFORMATION
  Report Type: 
  Country: None (occurrence: None)
  Receive Date: 20100624
  Receipt Date: 20100614
  Transmission Date: 20101027
  Serious: Yes (Other)
  Sender: FDA-Public Use
  Company Number: SE-PFIZER INC-2010073904

PATIENT
  Age: 60 Year
  Sex: Female

DRUGS (3)
  1. PREDNISOLONE [Suspect]
     Indication: POLYMYALGIA RHEUMATICA
     Dosage: 10-15 MG DAILY
     Dates: start: 20070101
  2. TOBRADEX [Concomitant]
     Route: 047
  3. MAXIDEX [Concomitant]
     Dosage: UNK
     Route: 047

REACTIONS (2)
  - EYE INJURY [None]
  - WOUND [None]
